FAERS Safety Report 9002719 (Version 1)
Quarter: 2013Q1

REPORT INFORMATION
  Report Type: Spontaneous
  Country: US (occurrence: US)
  Receive Date: 20130107
  Receipt Date: 20130107
  Transmission Date: 20140127
  Serious: No
  Sender: FDA-Public Use
  Company Number: US-GLAXOSMITHKLINE-A0994252A

PATIENT
  Age: 47 Year
  Sex: Female
  Weight: 59.02 kg

DRUGS (6)
  1. BENLYSTA [Suspect]
     Indication: SYSTEMIC LUPUS ERYTHEMATOSUS
     Route: 042
     Dates: start: 20110901
  2. PLAQUENIL [Concomitant]
     Dosage: 200MG PER DAY
  3. IRON SUPPLEMENT [Concomitant]
  4. CALTRATE WITH VITAMIN D [Concomitant]
     Dosage: 600MG PER DAY
  5. METABOLIFE [Concomitant]
  6. ADVIL [Concomitant]

REACTIONS (4)
  - Scar [Not Recovered/Not Resolved]
  - Rash [Recovered/Resolved with Sequelae]
  - Pruritus [Unknown]
  - Erythema [Unknown]
